FAERS Safety Report 5424760-6 (Version None)
Quarter: 2007Q3

REPORT INFORMATION
  Report Type: 
  Country: None (occurrence: None)
  Receive Date: 20070822
  Receipt Date: 20070808
  Transmission Date: 20080115
  Serious: Yes (Disabling)
  Sender: FDA-Public Use
  Company Number: SPV1-2007-03851

PATIENT
  Sex: Female

DRUGS (2)
  1. PENTASA [Suspect]
     Indication: CROHN'S DISEASE
     Dosage: 6,250 MG CAPSULES DAILY, ORAL, 3,250 MG CAPSULES DAILY, ORAL, 2,250 MG CAPSULES DAILY, ORAL
     Route: 048
     Dates: start: 20060101
  2. PREDNISONE TAB [Concomitant]

REACTIONS (3)
  - DYSPEPSIA [None]
  - FLATULENCE [None]
  - SINUS HEADACHE [None]
